FAERS Safety Report 9380545 (Version 3)
Quarter: 2013Q3

REPORT INFORMATION
  Report Type: Spontaneous
  Country: BR (occurrence: BR)
  Receive Date: 20130702
  Receipt Date: 20130711
  Transmission Date: 20140515
  Serious: Yes (Other)
  Sender: FDA-Public Use
  Company Number: BR-PFIZER INC-2013195511

PATIENT
  Age: 48 Year
  Sex: Female
  Weight: 72 kg

DRUGS (1)
  1. ATORVASTATINA CALCICA TEUTO [Suspect]
     Indication: BLOOD CHOLESTEROL ABNORMAL
     Dosage: 10 MG, 1X/DAY (AT NIGHT)
     Route: 048
     Dates: start: 20130618, end: 20130626

REACTIONS (5)
  - Dyspnoea [Unknown]
  - Gastrointestinal disorder [Unknown]
  - Constipation [Unknown]
  - Feeling abnormal [Unknown]
  - Pain in extremity [Unknown]
